FAERS Safety Report 9233133 (Version 2)
Quarter: 2013Q2

REPORT INFORMATION
  Report Type: Report from Study
  Country: US (occurrence: US)
  Receive Date: 20130416
  Receipt Date: 20130507
  Transmission Date: 20140414
  Serious: Yes (Hospitalization, Other)
  Sender: FDA-Public Use
  Company Number: PHEH2013US008459

PATIENT
  Age: 41 Year
  Sex: Female

DRUGS (1)
  1. GILENYA [Suspect]
     Indication: MULTIPLE SCLEROSIS
     Dosage: 0.5 MG, QD
     Route: 048
     Dates: start: 20110414

REACTIONS (4)
  - Nephrolithiasis [Recovering/Resolving]
  - Kidney infection [Recovering/Resolving]
  - Urinary retention [Recovered/Resolved]
  - Neurogenic bladder [Unknown]
